FAERS Safety Report 4877371-5 (Version None)
Quarter: 2006Q1

REPORT INFORMATION
  Report Type: 
  Country: None (occurrence: None)
  Receive Date: 20060109
  Receipt Date: 20051229
  Transmission Date: 20060701
  Serious: Yes (Other)
  Sender: FDA-Public Use
  Company Number: 2006000431

PATIENT
  Age: 3 Year
  Sex: Male
  Weight: 18.1439 kg

DRUGS (2)
  1. ZOLOFT [Suspect]
     Indication: AUTISM
     Dosage: 10 MG ( 1 IN 1 D), ORAL
     Route: 048
     Dates: start: 20051228
  2. BENADRYL [Suspect]
     Indication: INSOMNIA
     Dosage: (EVERY NIGHT), ORAL
     Route: 048
     Dates: start: 20041201

REACTIONS (1)
  - SLEEP DISORDER [None]
